FAERS Safety Report 11215995 (Version 2)
Quarter: 2015Q3

REPORT INFORMATION
  Report Type: Report from Study
  Country: US (occurrence: US)
  Receive Date: 20150624
  Receipt Date: 20150724
  Transmission Date: 20151125
  Serious: Yes (Hospitalization)
  Sender: FDA-Public Use
  Company Number: US-ACTELION-A-US2015-119775

PATIENT
  Age: 71 Year
  Sex: Female

DRUGS (1)
  1. VELETRI [Suspect]
     Active Substance: EPOPROSTENOL
     Indication: PULMONARY HYPERTENSION
     Dosage: 30 NG/KG, PER MIN
     Route: 042
     Dates: start: 20140804

REACTIONS (5)
  - Flushing [Unknown]
  - Pain of skin [Unknown]
  - Rash [Unknown]
  - Pain [Unknown]
  - Rectal prolapse [Unknown]
